FAERS Safety Report 11839560 (Version 1)
Quarter: 2015Q4

REPORT INFORMATION
  Report Type: Spontaneous
  Country: GB (occurrence: GB)
  Receive Date: 20151216
  Receipt Date: 20151216
  Transmission Date: 20160305
  Serious: Yes (Other)
  Sender: FDA-Public Use
  Company Number: GB-009507513-1512GBR006066

PATIENT
  Age: 67 Year
  Sex: Female

DRUGS (6)
  1. ESTRIOL [Suspect]
     Active Substance: ESTRIOL
     Indication: PREOPERATIVE CARE
     Dosage: 1 MG PER GRAM OF CREAM
     Route: 061
     Dates: start: 20151020, end: 20151126
  2. LATANOPROST. [Concomitant]
     Active Substance: LATANOPROST
     Indication: PRODUCT USED FOR UNKNOWN INDICATION
     Dosage: UNKNOWN
  3. ESTRIOL [Suspect]
     Active Substance: ESTRIOL
     Dosage: UNKNOWN
     Route: 067
  4. BETAMETHASONE VALERATE. [Suspect]
     Active Substance: BETAMETHASONE VALERATE
     Indication: GENITAL PAIN
     Dosage: 1 FINGERTIP UNIT ,  UNKNOWN
     Route: 061
     Dates: start: 20151127, end: 20151127
  5. DORZOLAMIDE HYDROCHLORIDE (+) TIMOLOL MALEATE [Concomitant]
     Active Substance: DORZOLAMIDE HYDROCHLORIDE\TIMOLOL MALEATE
     Indication: PRODUCT USED FOR UNKNOWN INDICATION
     Dosage: UNKNOWN
  6. SYSTANE (HYPROMELLOSE 2910 (4000 MPA.S)) [Concomitant]
     Active Substance: HYPROMELLOSE 2910 (4000 MPA.S)
     Indication: DRY EYE
     Dosage: UNKNOWN

REACTIONS (2)
  - Genital pain [Not Recovered/Not Resolved]
  - Genital burning sensation [Not Recovered/Not Resolved]

NARRATIVE: CASE EVENT DATE: 20151020
